FAERS Safety Report 7404993-X (Version None)
Quarter: 2011Q2

REPORT INFORMATION
  Report Type: 
  Country: None (occurrence: None)
  Receive Date: 20110411
  Receipt Date: 20110328
  Transmission Date: 20111010
  Serious: Yes (Hospitalization, Disabling)
  Sender: FDA-Public Use
  Company Number: US-RANBAXY-2011RR-43555

PATIENT
  Sex: Female

DRUGS (8)
  1. CIPROFLOXACIN [Suspect]
     Indication: BACTERIAL INFECTION
  2. LEVAQUIN [Suspect]
     Indication: PNEUMONIA
  3. TORADOL [Concomitant]
  4. MEDROL [Suspect]
     Indication: PNEUMONIA
     Route: 065
  5. LEVAQUIN [Suspect]
     Indication: ACUTE SINUSITIS
     Dosage: 750 MG, QD
     Route: 065
  6. CIPROFLOXACIN [Suspect]
     Indication: FOOD POISONING
     Dosage: 500 MG, BID
     Route: 048
  7. AZITHROMYCIN [Concomitant]
  8. PREDNISOLONE [Suspect]
     Indication: PNEUMONIA
     Route: 065

REACTIONS (6)
  - DRUG INEFFECTIVE [None]
  - TENDON DISORDER [None]
  - HAND DEFORMITY [None]
  - AUTOIMMUNE DISORDER [None]
  - MYALGIA [None]
  - ARTHRALGIA [None]
